FAERS Safety Report 6857273-5 (Version None)
Quarter: 2010Q3

REPORT INFORMATION
  Report Type: 
  Country: None (occurrence: None)
  Receive Date: 20100719
  Receipt Date: 20100713
  Transmission Date: 20110219
  Serious: Yes (Disabling, Other)
  Sender: FDA-Public Use
  Company Number: FR-KINGPHARMUSA00001-K201000878

PATIENT
  Sex: Male

DRUGS (2)
  1. ALTACE [Suspect]
     Indication: HYPERTENSION
     Dosage: UNK
     Route: 048
  2. AMLODIPINE [Suspect]
     Indication: HYPERTENSION
     Route: 048

REACTIONS (4)
  - ARTHRALGIA [None]
  - DRUG INTERACTION [None]
  - FOOD INTERACTION [None]
  - MYALGIA [None]
